FAERS Safety Report 6790254-9 (Version None)
Quarter: 2010Q2

REPORT INFORMATION
  Report Type: 
  Country: None (occurrence: None)
  Receive Date: 20100624
  Receipt Date: 20100621
  Transmission Date: 20101027
  Serious: Yes (Hospitalization, Other)
  Sender: FDA-Public Use
  Company Number: FR-BRISTOL-MYERS SQUIBB COMPANY-15135916

PATIENT
  Age: 34 Year
  Sex: Male

DRUGS (4)
  1. ABILIFY [Suspect]
     Indication: SCHIZOAFFECTIVE DISORDER
     Dosage: INITIAL DOSE:10MG,INCREASED TO 20MG;30MG APR2010.
     Route: 048
  2. LORAZEPAM [Concomitant]
     Route: 048
  3. TERCIAN [Concomitant]
     Route: 048
  4. DEPAKOTE [Concomitant]
     Indication: SCHIZOAFFECTIVE DISORDER
     Dosage: TABLET.
     Route: 048
     Dates: start: 20080101

REACTIONS (2)
  - DELUSION [None]
  - MANIA [None]
